FAERS Safety Report 7061044-7 (Version None)
Quarter: 2010Q4

REPORT INFORMATION
  Report Type: 
  Country: None (occurrence: None)
  Receive Date: 20101026
  Receipt Date: 20101018
  Transmission Date: 20110411
  Serious: Yes (Other)
  Sender: FDA-Public Use
  Company Number: US-PFIZER INC-2010132696

PATIENT

DRUGS (2)
  1. ZYVOX [Suspect]
  2. ZOSYN [Suspect]

REACTIONS (3)
  - ABDOMINAL DISCOMFORT [None]
  - ANAEMIA [None]
  - HAEMATOCHEZIA [None]
